FAERS Safety Report 7676551-3 (Version None)
Quarter: 2011Q3

REPORT INFORMATION
  Report Type: 
  Country: None (occurrence: None)
  Receive Date: 20110811
  Receipt Date: 20110809
  Transmission Date: 20111222
  Serious: Yes (Death)
  Sender: FDA-Public Use
  Company Number: DE-BAYER-2011-070907

PATIENT
  Age: 80 Year
  Sex: Male
  Weight: 89 kg

DRUGS (1)
  1. SORAFENIB [Suspect]
     Indication: HEPATIC NEOPLASM MALIGNANT
     Dosage: 400 MG, BID
     Route: 048
     Dates: start: 20100304, end: 20100331

REACTIONS (2)
  - GENERAL PHYSICAL HEALTH DETERIORATION [None]
  - ASCITES [None]
